FAERS Safety Report 5275505-4 (Version None)
Quarter: 2007Q1

REPORT INFORMATION
  Report Type: 
  Country: None (occurrence: None)
  Receive Date: 20070326
  Receipt Date: 20070313
  Transmission Date: 20070707
  Serious: Yes (Hospitalization)
  Sender: FDA-Public Use
  Company Number: CA-SOLVAY-00307000685

PATIENT
  Age: 23076 Day
  Sex: Male
  Weight: 63.2 kg

DRUGS (6)
  1. MSFR - NARCOTIC ANALGESIC [Concomitant]
     Indication: ANALGESIC EFFECT
     Dosage: DAILY DOSE:  UNKNOWN
     Route: 048
  2. MARINOL [Suspect]
     Indication: APPETITE DISORDER
     Dosage: DAILY DOSE: 5 MILLIGRAM(S)
     Route: 048
     Dates: start: 20070211, end: 20070201
  3. PMS - SENNOSIDE [Concomitant]
     Indication: CONSTIPATION
     Dosage: DAILY DOSE:  UNKNOWN
     Route: 048
  4. PMS DOCUSATE SODIUM [Concomitant]
     Indication: CONSTIPATION
     Dosage: DAILY DOSE:  UNKNOWN
     Route: 048
  5. IBUPROFEN [Concomitant]
     Indication: INFLAMMATION
     Dosage: DAILY DOSE:  UNKNOWN
     Route: 048
  6. METOCLOPRAMIDE [Concomitant]
     Indication: VOMITING
     Dosage: DAILY DOSE:  UNKNOWN
     Route: 048

REACTIONS (2)
  - FALL [None]
  - SPINAL CORD COMPRESSION [None]
